FAERS Safety Report 17328707 (Version 1)
Quarter: 2020Q1

REPORT INFORMATION
  Report Type: Spontaneous
  Country: GB (occurrence: GB)
  Receive Date: 20200127
  Receipt Date: 20200127
  Transmission Date: 20200409
  Serious: Yes (Disabling)
  Sender: FDA-Public Use
  Company Number: GB-MYLANLABS-2020M1009034

PATIENT
  Age: 68 Year
  Sex: Female
  Weight: 60 kg

DRUGS (9)
  1. CHLORPROMAZINE. [Concomitant]
     Active Substance: CHLORPROMAZINE
     Dosage: HALF OR ONE TABLET AT NIGHT BEFORE BED
     Dates: start: 20180611
  2. HYDROXYZINE [Concomitant]
     Active Substance: HYDROXYZINE HYDROCHLORIDE
     Dosage: TAKE ONE OR TWO AT NIGHT FOR 1 MONTH
     Dates: start: 20190926, end: 20191024
  3. FEXOFENADINE [Concomitant]
     Active Substance: FEXOFENADINE HYDROCHLORIDE
     Dosage: MORNING AND MID-DAY
     Dates: start: 20190926, end: 20191024
  4. CARBAMAZEPINE. [Concomitant]
     Active Substance: CARBAMAZEPINE
     Dosage: TAKE ONE DAILY AND BUILD UP GRADUALLY (ONE TWIC...
     Dates: start: 20191028
  5. MONTELUKAST [Suspect]
     Active Substance: MONTELUKAST SODIUM
     Indication: PRODUCT USED FOR UNKNOWN INDICATION
     Dosage: AT NIGHT
     Dates: start: 20190926, end: 20191024
  6. EXEMESTANE. [Concomitant]
     Active Substance: EXEMESTANE
     Dosage: 1 DOSAGE FORM, QD
     Dates: start: 20180416
  7. CYANOCOBALAMIN. [Concomitant]
     Active Substance: CYANOCOBALAMIN
     Dosage: 1 DOSAGE FORM, QD
     Dates: start: 20171102, end: 20191028
  8. ZOPICLONE [Concomitant]
     Active Substance: ZOPICLONE
     Dosage: AT NIGHT
     Dates: start: 20160930
  9. LANSOPRAZOLE. [Concomitant]
     Active Substance: LANSOPRAZOLE
     Dosage: ONCE DAILY
     Dates: start: 20191009

REACTIONS (2)
  - Abnormal dreams [Recovered/Resolved]
  - Mood altered [Recovered/Resolved]

NARRATIVE: CASE EVENT DATE: 20191104
